FAERS Safety Report 9159251 (Version 1)
Quarter: 2013Q1

REPORT INFORMATION
  Report Type: Spontaneous
  Country: GR (occurrence: None)
  Receive Date: 20130213
  Receipt Date: 20130213
  Transmission Date: 20140127
  Serious: Yes (Hospitalization)
  Sender: FDA-Public Use
  Company Number: EUS-2013-00055

PATIENT
  Age: 17 Month
  Sex: Female

DRUGS (4)
  1. ASPARAGINASE (UNSPECIFIED) (ASPARAGINASE) [Suspect]
     Indication: ACUTE MEGAKARYOCYTIC LEUKAEMIA
  2. DAUNORUBICIN (DAUNORUBICIN) [Concomitant]
  3. PREDNISONE (PREDNISONE) (PREDNISONE) [Concomitant]
  4. VINCRISTINE (VINCRISTINE) (VINCRISTINE) [Concomitant]

REACTIONS (1)
  - Thrombocytopenia [None]
